FAERS Safety Report 4539285-X (Version None)
Quarter: 2004Q4

REPORT INFORMATION
  Report Type: 
  Country: None (occurrence: None)
  Receive Date: 20041222
  Receipt Date: 20041213
  Transmission Date: 20050328
  Serious: Yes (Hospitalization)
  Sender: FDA-Public Use
  Company Number: 2004109569

PATIENT
  Age: 67 Year
  Sex: Female

DRUGS (7)
  1. TAHOR (ATORVASTATIN) [Suspect]
     Indication: ILL-DEFINED DISORDER
     Dosage: ONE DOSE FORM (1 IN 1 D), ORAL
     Route: 048
  2. ALLOPURINOL [Suspect]
     Indication: ILL-DEFINED DISORDER
     Dosage: ONE DOSE FORM (1 IN 1 D), ORAL
     Route: 048
  3. COLCHICINE/OPIUM/TIEMONIUM (COLCHICINE, OPIUM, TIEMONIUM METHYLSULPHAT [Suspect]
     Indication: ILL-DEFINED DISORDER
     Dosage: (1 IN 1 D), ORAL
     Route: 048
     Dates: end: 20040925
  4. ACETYLSALICYLIC ACID SRT [Suspect]
     Indication: ILL-DEFINED DISORDER
     Dosage: (160 MG, 1 IN 1 D), ORAL
     Route: 048
  5. FOSINOPRIL SODIUM [Suspect]
     Indication: ILL-DEFINED DISORDER
     Dosage: (20 MG, 1 IN 1 D), ORAL
     Route: 048
  6. CARVEDILOL [Concomitant]
  7. FUROSEMIDE [Concomitant]

REACTIONS (5)
  - DISSEMINATED INTRAVASCULAR COAGULATION [None]
  - DRUG RASH WITH EOSINOPHILIA AND SYSTEMIC SYMPTOMS [None]
  - PHAEOCHROMOCYTOMA [None]
  - PURPURA [None]
  - RENAL FAILURE [None]
